FAERS Safety Report 13054298 (Version 6)
Quarter: 2017Q2

REPORT INFORMATION
  Report Type: Spontaneous
  Country: US (occurrence: US)
  Receive Date: 20161222
  Receipt Date: 20170404
  Transmission Date: 20170830
  Serious: Yes (Death)
  Sender: FDA-Public Use
  Company Number: US-CELGENEUS-USA-2016084857

PATIENT
  Age: 65 Year
  Sex: Female

DRUGS (6)
  1. VALACYCLOVIR [Concomitant]
     Active Substance: VALACYCLOVIR HYDROCHLORIDE
     Indication: PROPHYLAXIS
     Dosage: 500 MILLIGRAM
     Route: 048
     Dates: start: 201512, end: 201608
  2. METOPROLOL. [Concomitant]
     Active Substance: METOPROLOL
     Indication: HYPERTENSION
     Dosage: 25 MILLIGRAM
     Route: 048
     Dates: end: 201509
  3. VITAMIN D3 [Concomitant]
     Active Substance: CHOLECALCIFEROL
     Indication: NICOTINAMIDE DECREASED
     Dosage: 2000 IU (INTERNATIONAL UNIT)
     Route: 048
     Dates: start: 201501, end: 201609
  4. ATIVAN [Concomitant]
     Active Substance: LORAZEPAM
     Indication: INSOMNIA
     Dosage: 1 MILLIGRAM
     Route: 048
     Dates: end: 201608
  5. REVLIMID [Suspect]
     Active Substance: LENALIDOMIDE
     Indication: PLASMA CELL MYELOMA
     Dosage: 10 MILLIGRAM
     Route: 048
     Dates: start: 201512, end: 201608
  6. MAGNESIUM [Concomitant]
     Active Substance: MAGNESIUM
     Indication: BLOOD MAGNESIUM DECREASED
     Dosage: 500 MILLIGRAM
     Route: 048
     Dates: start: 201512, end: 201608

REACTIONS (2)
  - Plasma cell myeloma [Fatal]
  - Sepsis [Fatal]

NARRATIVE: CASE EVENT DATE: 20160922
